FAERS Safety Report 12758388 (Version 1)
Quarter: 2016Q3

REPORT INFORMATION
  Report Type: Spontaneous
  Country: US (occurrence: US)
  Receive Date: 20160915
  Receipt Date: 20160915
  Transmission Date: 20161109
  Serious: No
  Sender: FDA-Public Use
  Company Number: None

PATIENT
  Age: 25 Year
  Sex: Female

DRUGS (1)
  1. COPAXONE [Suspect]
     Active Substance: GLATIRAMER ACETATE
     Indication: MULTIPLE SCLEROSIS
     Dosage: 40MG/ML 3 TIMES WEEKLY SUBQUTANEOUSLY
     Route: 058
     Dates: start: 201603, end: 201607

REACTIONS (3)
  - Hypersensitivity [None]
  - Palpitations [None]
  - Chills [None]

NARRATIVE: CASE EVENT DATE: 20160701
